FAERS Safety Report 7864872-0 (Version None)
Quarter: 2011Q4

REPORT INFORMATION
  Report Type: 
  Country: None (occurrence: None)
  Receive Date: 20111028
  Receipt Date: 20100909
  Transmission Date: 20120403
  Serious: No
  Sender: FDA-Public Use
  Company Number: US-GLAXOSMITHKLINE-A0880503A

PATIENT
  Age: 57 Year
  Sex: Female

DRUGS (3)
  1. ADVAIR DISKUS 100/50 [Suspect]
     Indication: CHRONIC OBSTRUCTIVE PULMONARY DISEASE
     Dosage: 1BLS TWICE PER DAY
     Route: 055
  2. ALBUTEROL [Concomitant]
     Route: 055
  3. INHALER [Concomitant]

REACTIONS (2)
  - OROPHARYNGEAL PAIN [None]
  - URINARY RETENTION [None]
